FAERS Safety Report 21663478 (Version 2)
Quarter: 2023Q2

REPORT INFORMATION
  Report Type: Spontaneous
  Country: US (occurrence: US)
  Receive Date: 20221130
  Receipt Date: 20230411
  Transmission Date: 20230721
  Serious: Yes (Life-Threatening, Hospitalization, Other)
  Sender: FDA-Public Use
  Company Number: US-JUBILANT CADISTA PHARMACEUTICALS-2022JUB00450

PATIENT
  Age: 40 Year
  Sex: Male

DRUGS (18)
  1. PREDNISONE [Suspect]
     Active Substance: PREDNISONE
     Indication: COVID-19
     Dosage: 0.5 MG/KG
     Dates: start: 2022, end: 2022
  2. PREDNISONE [Suspect]
     Active Substance: PREDNISONE
     Indication: Organising pneumonia
  3. PREDNISONE [Suspect]
     Active Substance: PREDNISONE
     Indication: Bronchopulmonary aspergillosis
  4. DEXAMETHASONE [Suspect]
     Active Substance: DEXAMETHASONE
     Indication: COVID-19
     Dosage: TAPER
     Dates: start: 202203, end: 202204
  5. DEXAMETHASONE [Suspect]
     Active Substance: DEXAMETHASONE
     Indication: Lower respiratory tract infection viral
  6. REMDESIVIR [Concomitant]
     Active Substance: REMDESIVIR
     Indication: COVID-19
     Dosage: UNK
     Route: 042
     Dates: start: 202203
  7. REMDESIVIR [Concomitant]
     Active Substance: REMDESIVIR
     Indication: Lower respiratory tract infection viral
     Dosage: UNK
     Route: 042
     Dates: start: 2022
  8. OXYGEN [Concomitant]
     Active Substance: OXYGEN
     Indication: COVID-19
     Dosage: 2 L, 2ND DOSE
     Route: 045
     Dates: start: 2022
  9. OXYGEN [Concomitant]
     Active Substance: OXYGEN
     Indication: Lower respiratory tract infection viral
     Dosage: 4 L, 2ND DOSE
     Route: 045
     Dates: start: 2022
  10. OXYGEN [Concomitant]
     Active Substance: OXYGEN
     Dosage: 3 L
     Route: 045
     Dates: start: 2022
  11. OXYGEN [Concomitant]
     Active Substance: OXYGEN
     Dosage: 4 L
     Route: 045
     Dates: start: 2022
  12. OXYGEN [Concomitant]
     Active Substance: OXYGEN
     Dosage: 10 L
     Route: 045
     Dates: start: 202204
  13. OXYGEN [Concomitant]
     Active Substance: OXYGEN
     Dosage: 15 L
     Dates: start: 202204
  14. OXYGEN [Concomitant]
     Active Substance: OXYGEN
     Dosage: 2 L
     Route: 045
     Dates: start: 2022
  15. OXYGEN [Concomitant]
     Active Substance: OXYGEN
     Dosage: 8 L
     Route: 045
     Dates: start: 202204
  16. OXYGEN [Concomitant]
     Active Substance: OXYGEN
     Dosage: 10 L
     Dates: start: 202204
  17. OXYGEN [Concomitant]
     Active Substance: OXYGEN
     Dosage: 8 L
     Route: 045
     Dates: start: 2022
  18. OXYGEN [Concomitant]
     Active Substance: OXYGEN
     Dosage: 4 L
     Route: 045
     Dates: start: 2022

REACTIONS (4)
  - COVID-19 pneumonia [Recovered/Resolved]
  - SARS-CoV-2 RNA increased [Recovered/Resolved]
  - SARS-CoV-2 viraemia [Recovered/Resolved]
  - Bronchopulmonary aspergillosis [Recovered/Resolved]

NARRATIVE: CASE EVENT DATE: 20220101
